FAERS Safety Report 9477185 (Version 1)
Quarter: 2013Q3

REPORT INFORMATION
  Report Type: Not Available
  Country: US (occurrence: US)
  Receive Date: 20130826
  Receipt Date: 20130826
  Transmission Date: 20140515
  Serious: No
  Sender: FDA-Public Use
  Company Number: US-AMARIN PHARMA, INC.-2013AMR000036

PATIENT
  Age: 47 Year
  Sex: Female

DRUGS (13)
  1. VASCEPA [Suspect]
     Indication: BLOOD CHOLESTEROL INCREASED
     Route: 048
     Dates: start: 20130611, end: 20130705
  2. VASCEPA [Suspect]
     Route: 048
  3. METFORMIN [Concomitant]
     Indication: DIABETES MELLITUS
     Route: 048
  4. PRILOSEC [Concomitant]
     Indication: GASTROOESOPHAGEAL REFLUX DISEASE
     Route: 048
  5. ATIVAN [Concomitant]
     Indication: MULTIPLE SCLEROSIS
     Route: 048
  6. ADDERALL [Concomitant]
     Indication: MULTIPLE SCLEROSIS
     Route: 048
  7. ABILIFY [Concomitant]
     Indication: DEPRESSION
     Route: 048
  8. PROZAC [Concomitant]
     Indication: DEPRESSION
     Route: 048
  9. SINGULAR [Concomitant]
     Indication: ASTHMA
     Route: 048
  10. COMBIVENT INHALER [Concomitant]
     Indication: ASTHMA
  11. OPANA [Concomitant]
     Indication: PAIN
     Route: 048
  12. NORCO [Concomitant]
     Indication: PAIN
     Route: 048
  13. HP ACTHAR GEL [Concomitant]
     Indication: MULTIPLE SCLEROSIS
     Dosage: PATIENT RECEIVES MEDICATION ONCE A MONTH. THE INJECTIONS ARE 1 CC INJECTIONS THE PATIENT RECEIVES 1

REACTIONS (5)
  - Asthenia [Recovering/Resolving]
  - Tremor [Recovered/Resolved]
  - Palpitations [Recovered/Resolved]
  - Blood pressure increased [Recovered/Resolved]
  - Feeling abnormal [Recovered/Resolved]
